FAERS Safety Report 5071571-X (Version None)
Quarter: 2006Q3

REPORT INFORMATION
  Report Type: 
  Country: None (occurrence: None)
  Receive Date: 20060803
  Receipt Date: 20060803
  Transmission Date: 20061208
  Serious: Yes (Hospitalization)
  Sender: FDA-Public Use
  Company Number: None

PATIENT
  Age: 56 Year
  Sex: Male
  Weight: 78.4723 kg

DRUGS (2)
  1. PLAVIX [Suspect]
     Indication: MYOCARDIAL INFARCTION
     Dosage: 1 TAB DAILY PO
     Route: 048
     Dates: start: 20060101, end: 20060726
  2. ASPIRIN [Suspect]
     Dosage: 1 TAB DAILY PO
     Route: 048
     Dates: start: 20060101, end: 20060726

REACTIONS (1)
  - GASTRIC ULCER HAEMORRHAGE [None]
